FAERS Safety Report 4848403-5 (Version None)
Quarter: 2005Q4

REPORT INFORMATION
  Report Type: 
  Country: None (occurrence: None)
  Receive Date: 20051208
  Receipt Date: 20051128
  Transmission Date: 20060501
  Serious: Yes (Hospitalization)
  Sender: FDA-Public Use
  Company Number: ES-ROCHE-426442

PATIENT
  Age: 63 Year
  Sex: Male

DRUGS (2)
  1. CEFTRIAXONE SODIUM [Suspect]
     Indication: SUBACUTE ENDOCARDITIS
     Route: 042
  2. GENTAMICIN [Concomitant]
     Indication: SUBACUTE ENDOCARDITIS
     Route: 042

REACTIONS (3)
  - BENIGN INTRACRANIAL HYPERTENSION [None]
  - PAPILLOEDEMA [None]
  - VITH NERVE PARALYSIS [None]
